FAERS Safety Report 17343237 (Version 1)
Quarter: 2020Q1

REPORT INFORMATION
  Report Type: Spontaneous
  Country: PR (occurrence: PR)
  Receive Date: 20200129
  Receipt Date: 20200129
  Transmission Date: 20200409
  Serious: No
  Sender: FDA-Public Use
  Company Number: PR-PFIZER INC-2020041395

PATIENT
  Age: 53 Year
  Sex: Female
  Weight: 84.81 kg

DRUGS (1)
  1. IBRANCE [Suspect]
     Active Substance: PALBOCICLIB
     Indication: BREAST CANCER FEMALE
     Dosage: 125 MG, CYCLIC (DAILY FOR 21 DAYS ON, 7 DAYS OFF)
     Route: 048
     Dates: start: 20190813

REACTIONS (8)
  - Headache [Unknown]
  - Thirst [Unknown]
  - Dizziness [Unknown]
  - Fatigue [Unknown]
  - Ageusia [Unknown]
  - Alopecia [Unknown]
  - Epistaxis [Unknown]
  - Nasal dryness [Unknown]
